FAERS Safety Report 8736240 (Version 3)
Quarter: 2012Q4

REPORT INFORMATION
  Report Type: 
  Country: JP (occurrence: JP)
  Receive Date: 20120822
  Receipt Date: 20120906
  Transmission Date: 20130627
  Serious: Yes (Other)
  Sender: FDA-Public Use
  Company Number: JP-PFIZER INC-2012202951

PATIENT
  Age: 47 Year
  Sex: Male

DRUGS (1)
  1. ATARAX-P [Suspect]
     Dosage: UNK
     Route: 048
     Dates: start: 20120820

REACTIONS (1)
  - Gastric fistula [Unknown]
